FAERS Safety Report 10020637 (Version 1)
Quarter: 2014Q1

REPORT INFORMATION
  Report Type: Spontaneous
  Country: CN (occurrence: CN)
  Receive Date: 20140319
  Receipt Date: 20140319
  Transmission Date: 20141002
  Serious: Yes (Other)
  Sender: FDA-Public Use
  Company Number: CN-BRISTOL-MYERS SQUIBB COMPANY-20444063

PATIENT
  Age: 39 Year
  Sex: Male

DRUGS (1)
  1. BARACLUDE [Suspect]
     Dosage: ONGOING.
     Route: 048
     Dates: start: 201310

REACTIONS (2)
  - Nephrolithiasis [Unknown]
  - Fatigue [Unknown]
